FAERS Safety Report 15883420 (Version 2)
Quarter: 2019Q1

REPORT INFORMATION
  Report Type: Spontaneous
  Country: GB (occurrence: GB)
  Receive Date: 20190129
  Receipt Date: 20190319
  Transmission Date: 20190417
  Serious: Yes (Life-Threatening, Hospitalization, Other)
  Sender: FDA-Public Use
  Company Number: GB-ACCORD-103509

PATIENT
  Age: 29 Year
  Sex: Female

DRUGS (11)
  1. PREDNISOLONE. [Suspect]
     Active Substance: PREDNISOLONE
     Indication: ASTHMA
     Dosage: ALSO RECEIVED ADDITIONALLY TWICE ON UNKNOWN DATES, ALSO RECEIVED (30 MG) ON UNK DATE
     Route: 048
  2. HYDROCORTISONE. [Suspect]
     Active Substance: HYDROCORTISONE
     Indication: ASTHMA
     Dosage: 100 MG, UNK
     Route: 042
  3. KETAMINE [Suspect]
     Active Substance: KETAMINE
     Indication: ASTHMA
     Dosage: INCREASED TO 45 MICROG/KG/MIN, ALSO RECEIVED ADDITIONALLY ON UNKNOWN DATE
     Route: 042
  4. MAGNESIUM SULFATE. [Suspect]
     Active Substance: MAGNESIUM SULFATE
     Indication: ASTHMA
     Dosage: UNK, ALSO RECEIVED ADDITIONALLY ON UNKNOWN DATE
     Route: 042
  5. SALBUTAMOL [Suspect]
     Active Substance: ALBUTEROL
     Indication: ASTHMA
     Dosage: NEBULISER : IN REPEATED DOSES, 250 UG THROUGH INTRAVENOUS BOLUS, ALSO RECEIVED UNK DOSE ADDITIONALLY
     Route: 065
  6. IPRATROPIUM [Suspect]
     Active Substance: IPRATROPIUM
     Indication: ASTHMA
     Dosage: NEBULISATION, ALSO RECEIVED ADDITIONALLY
     Route: 065
  7. EPINEPHRINE. [Suspect]
     Active Substance: EPINEPHRINE
     Indication: ASTHMA
     Dosage: DILUTED IN SMALL INCREMENTS, ALSO RECEIVED ADDITIONALLY, ALSO RECEIVED (350 MICROGRAM) ON UNK DATE
     Route: 065
  8. SEVOFLURANE. [Suspect]
     Active Substance: SEVOFLURANE
     Indication: ASTHMA
     Dosage: DOSE: 8 % PERCENT, ALSO RECEIVED ADDITIONALLY
     Route: 055
  9. MONTELUKAST [Suspect]
     Active Substance: MONTELUKAST SODIUM
     Indication: ASTHMA
     Dosage: ALSO RECEIVED ADDITIONALLY
     Route: 048
  10. ALBUTEROL. [Suspect]
     Active Substance: ALBUTEROL
     Indication: ASTHMA
     Dosage: UNK 0.5 MG
     Route: 042
  11. THEOPHYLLINE [Suspect]
     Active Substance: THEOPHYLLINE ANHYDROUS
     Indication: ASTHMA
     Dosage: UNK, ALSO RECEIVED  ADDITIONALLY THRICE ON UNK DATES

REACTIONS (14)
  - Blood lactic acid increased [Recovering/Resolving]
  - Status asthmaticus [Recovered/Resolved]
  - Airway peak pressure increased [Recovering/Resolving]
  - Bronchospasm [Recovering/Resolving]
  - Off label use [Unknown]
  - Blood bicarbonate decreased [Recovering/Resolving]
  - Cyanosis [Recovering/Resolving]
  - Drug ineffective [Unknown]
  - Respiratory acidosis [Recovering/Resolving]
  - Asthma [Recovering/Resolving]
  - Dyspnoea [Recovering/Resolving]
  - Acute respiratory failure [Recovered/Resolved]
  - Lung hyperinflation [Recovering/Resolving]
  - Wheezing [Recovering/Resolving]
